FAERS Safety Report 15201646 (Version 7)
Quarter: 2020Q3

REPORT INFORMATION
  Report Type: Report from Study
  Country: US (occurrence: US)
  Receive Date: 20180726
  Receipt Date: 20200708
  Transmission Date: 20201102
  Serious: Yes (Other)
  Sender: FDA-Public Use
  Company Number: PHEH2018US029353

PATIENT
  Age: 22 Year
  Sex: Female
  Weight: 64 kg

DRUGS (3)
  1. KYMRIAH [Suspect]
     Active Substance: TISAGENLECLEUCEL
     Indication: B-CELL TYPE ACUTE LEUKAEMIA
     Dosage: 21 ML, ONCE/SINGLE
     Route: 042
     Dates: start: 20180703
  2. CYCLOPHOSPHAMIDE. [Concomitant]
     Active Substance: CYCLOPHOSPHAMIDE
     Indication: CHEMOTHERAPY
     Dosage: UNK
     Route: 065
  3. FLUDARABINE [Concomitant]
     Active Substance: FLUDARABINE PHOSPHATE
     Indication: CHEMOTHERAPY
     Dosage: UNK
     Route: 065

REACTIONS (9)
  - Blood pressure abnormal [Unknown]
  - Lymphocyte count decreased [Unknown]
  - Thrombocytopenia [Unknown]
  - Cytopenia [Unknown]
  - B-cell type acute leukaemia [Unknown]
  - Pyrexia [Unknown]
  - Malignant neoplasm progression [Unknown]
  - Pain [Unknown]
  - Neutropenia [Unknown]

NARRATIVE: CASE EVENT DATE: 20180705
